FAERS Safety Report 9242718 (Version 1)
Quarter: 2013Q2

REPORT INFORMATION
  Report Type: Spontaneous
  Country: US (occurrence: US)
  Receive Date: 20130419
  Receipt Date: 20130419
  Transmission Date: 20140414
  Serious: Yes (Other)
  Sender: FDA-Public Use
  Company Number: US-CELGENEUS-163-POMAL-13042633

PATIENT
  Sex: Female

DRUGS (3)
  1. POMALYST [Suspect]
     Indication: MYELOFIBROSIS
     Dosage: 1 MILLIGRAM
     Route: 048
     Dates: start: 20130312
  2. ASA [Concomitant]
     Indication: PRODUCT USED FOR UNKNOWN INDICATION
     Route: 065
  3. LOTREL [Concomitant]
     Indication: PRODUCT USED FOR UNKNOWN INDICATION
     Route: 065

REACTIONS (1)
  - Retinal vein thrombosis [Not Recovered/Not Resolved]
